FAERS Safety Report 10042326 (Version 2)
Quarter: 2014Q1

REPORT INFORMATION
  Report Type: Spontaneous
  Country: CA (occurrence: CA)
  Receive Date: 20140327
  Receipt Date: 20140327
  Transmission Date: 20141002
  Serious: Yes (Other)
  Sender: FDA-Public Use
  Company Number: CA-AMGEN-CANSP2013061884

PATIENT
  Age: 66 Year
  Sex: Male

DRUGS (9)
  1. XGEVA [Suspect]
     Indication: NEOPLASM MALIGNANT
     Dosage: 120 MG, UNK
     Route: 065
     Dates: start: 20120508
  2. FLOMAX                             /00889901/ [Concomitant]
     Dosage: 0.4 MG, QD
     Route: 065
  3. LANSOPRAZOLE [Concomitant]
     Dosage: 30 MG, QD
     Route: 065
  4. CALCIUM [Concomitant]
     Dosage: 600 MG, BID
     Route: 065
  5. VIT D [Concomitant]
     Dosage: 400 MG, BID
     Route: 065
  6. ZOLADEX                            /00732101/ [Concomitant]
     Dosage: 10.8 UNK, Q9MO
     Route: 065
  7. PREDNISONE                         /00044702/ [Concomitant]
     Dosage: 5 MG, QD
     Route: 065
  8. HYDROMORPHONE [Concomitant]
     Dosage: 6 MG, BID
     Route: 065
  9. ZYTIGA [Concomitant]
     Route: 065

REACTIONS (2)
  - Bone swelling [Recovering/Resolving]
  - Tooth infection [Not Recovered/Not Resolved]
